FAERS Safety Report 23064443 (Version 7)
Quarter: 2023Q4

REPORT INFORMATION
  Report Type: Report from Study
  Country: KR (occurrence: KR)
  Receive Date: 20231013
  Receipt Date: 20231206
  Transmission Date: 20240110
  Serious: Yes (Hospitalization)
  Sender: FDA-Public Use
  Company Number: KR-Eisai-EC-2023-150406

PATIENT
  Age: 74 Year
  Sex: Female
  Weight: 60.6 kg

DRUGS (35)
  1. LENVATINIB [Suspect]
     Active Substance: LENVATINIB
     Indication: Endometrial adenocarcinoma
     Route: 048
     Dates: start: 20230920, end: 20231003
  2. LENVATINIB [Suspect]
     Active Substance: LENVATINIB
     Dosage: STARTING DOSE AT 14 MG, FLUCTUATED DOSE
     Route: 048
     Dates: start: 20231013
  3. PEMBROLIZUMAB [Suspect]
     Active Substance: PEMBROLIZUMAB
     Indication: Endometrial adenocarcinoma
     Route: 041
     Dates: start: 20230920, end: 20230920
  4. PEMBROLIZUMAB [Suspect]
     Active Substance: PEMBROLIZUMAB
     Route: 041
     Dates: start: 20231122
  5. BELZUTIFAN [Suspect]
     Active Substance: BELZUTIFAN
     Indication: Endometrial adenocarcinoma
     Route: 048
     Dates: start: 20230920, end: 20231012
  6. BELZUTIFAN [Suspect]
     Active Substance: BELZUTIFAN
     Dosage: STARTING DOSE AT 80 MG, FLUCTUATED DOSE
     Route: 048
     Dates: start: 20231013
  7. ANYCOUGH [THEOBROMINE] [Concomitant]
     Dates: start: 201309
  8. CHOLIATIN [Concomitant]
     Dates: start: 201309
  9. URSODIOL [Concomitant]
     Active Substance: URSODIOL
     Dates: start: 20230907, end: 20231014
  10. GODEX [ADENINE HYDROCHLORIDE;BIFENDATE;CARNITINE OROTATE;CYANOCOBALAMI [Concomitant]
     Dates: start: 20230907, end: 20231014
  11. DULACKHAN [Concomitant]
     Dates: start: 20230913
  12. DULACKHAN [Concomitant]
     Dates: start: 20130913
  13. MAGMIL S [Concomitant]
     Dates: start: 20230913
  14. FOSTER [Concomitant]
     Active Substance: BECLOMETHASONE\FORMOTEROL
     Dates: start: 201309
  15. TYLENOL 8HR [Concomitant]
     Active Substance: ACETAMINOPHEN
     Dates: start: 20230920
  16. TANTUM [BENZYDAMINE HYDROCHLORIDE] [Concomitant]
     Dates: start: 20230925
  17. SODIUM BICARBONATE [Concomitant]
     Active Substance: SODIUM BICARBONATE
     Dates: start: 20230925
  18. SODIUM BICARBONATE [Concomitant]
     Active Substance: SODIUM BICARBONATE
     Dates: start: 20230925
  19. DEXAMETHASONE [Concomitant]
     Active Substance: DEXAMETHASONE
     Dates: start: 20230925
  20. DEXAMETHASONE [Concomitant]
     Active Substance: DEXAMETHASONE
     Dates: start: 20230925
  21. AMCILLIN [AMPICILLIN] [Concomitant]
     Dates: start: 20230925
  22. AMCILLIN [AMPICILLIN] [Concomitant]
     Dates: start: 20230925
  23. SOLONDO [PREDNISOLONE] [Concomitant]
     Dates: start: 20230925
  24. SOLONDO [PREDNISOLONE] [Concomitant]
     Dates: start: 20230925
  25. ENCOVER [Concomitant]
     Dates: start: 20230925
  26. ENCOVER [Concomitant]
     Dates: start: 20230925
  27. PENIRAMIN [Concomitant]
     Route: 042
     Dates: start: 20231004, end: 20231004
  28. PROPACETAMOL HYDROCHLORIDE [Concomitant]
     Active Substance: PROPACETAMOL HYDROCHLORIDE
     Dates: start: 20231004, end: 20231004
  29. HERBALS [Concomitant]
     Active Substance: HERBALS
     Dates: start: 20230913
  30. CAROL-F [Concomitant]
  31. CAROL-F [Concomitant]
     Dates: start: 20230913
  32. HEBRON-F [Concomitant]
     Dates: start: 201309
  33. ACETYLCYSTEINE [Concomitant]
     Active Substance: ACETYLCYSTEINE
     Dates: start: 201309
  34. PRIATIL [Concomitant]
     Dates: start: 201309
  35. LIVALO [Concomitant]
     Active Substance: PITAVASTATIN CALCIUM
     Dates: start: 201309

REACTIONS (2)
  - Fatigue [Not Recovered/Not Resolved]
  - Platelet count decreased [Recovered/Resolved]

NARRATIVE: CASE EVENT DATE: 20231004
